FAERS Safety Report 9894562 (Version 2)
Quarter: 2014Q3

REPORT INFORMATION
  Report Type: Report from Study
  Country: DE (occurrence: DE)
  Receive Date: 20140213
  Receipt Date: 20140814
  Transmission Date: 20150326
  Serious: Yes (Hospitalization)
  Sender: FDA-Public Use
  Company Number: DE-FRI-1000054029

PATIENT
  Sex: Male
  Weight: 107 kg

DRUGS (3)
  1. VILAZODONE (OPEN-LABEL) [Suspect]
     Active Substance: VILAZODONE
     Indication: DEPRESSION
     Dosage: 40 MG
     Route: 048
     Dates: start: 20131105, end: 20140131
  2. SALICYLIC ACID BALM [Concomitant]
     Route: 061
  3. UREA BALM [Concomitant]
     Route: 061

REACTIONS (1)
  - Stress [Not Recovered/Not Resolved]

NARRATIVE: CASE EVENT DATE: 20140128
